FAERS Safety Report 12587394 (Version 1)
Quarter: 2016Q3

REPORT INFORMATION
  Report Type: Spontaneous
  Country: IN (occurrence: IN)
  Receive Date: 20160725
  Receipt Date: 20160725
  Transmission Date: 20161109
  Serious: Yes (Other)
  Sender: FDA-Public Use
  Company Number: IN-ACTAVIS-2016-16089

PATIENT
  Age: 65 Year
  Sex: Male

DRUGS (2)
  1. TRIAMCINOLONE ACETONIDE (AMALLC) [Suspect]
     Active Substance: TRIAMCINOLONE ACETONIDE
     Indication: DIABETIC RETINAL OEDEMA
     Dosage: 20 MG IN 0.5 ML IN THE RIGHT EYE
     Route: 047
     Dates: start: 20131216
  2. MOXIFLOXACIN. [Concomitant]
     Active Substance: MOXIFLOXACIN
     Indication: PRODUCT USED FOR UNKNOWN INDICATION
     Dosage: IN THE RIGHT EYE
     Route: 061
     Dates: start: 201312

REACTIONS (1)
  - Infective scleritis [Recovered/Resolved]

NARRATIVE: CASE EVENT DATE: 20131219
